FAERS Safety Report 5404178-2 (Version None)
Quarter: 2007Q3

REPORT INFORMATION
  Report Type: 
  Country: None (occurrence: None)
  Receive Date: 20070731
  Receipt Date: 20070716
  Transmission Date: 20080115
  Serious: Yes (Other)
  Sender: FDA-Public Use
  Company Number: 2007BI000719

PATIENT
  Age: 46 Year
  Sex: Female

DRUGS (10)
  1. NATALIZUMAB [Suspect]
     Indication: MULTIPLE SCLEROSIS
     Dosage: 300 MG;QM;IV
     Route: 042
     Dates: start: 20061206, end: 20070103
  2. NATALIZUMAB [Suspect]
  3. DETROL LA [Concomitant]
  4. REQUIP [Concomitant]
  5. TRAZODONE HCL [Concomitant]
  6. PROVIGIL [Concomitant]
  7. SONATA [Concomitant]
  8. CALCIUM CHLORIDE [Concomitant]
  9. EFFEXOR XR [Concomitant]
  10. MULTI-VITAMIN [Concomitant]

REACTIONS (1)
  - ANAPHYLACTOID REACTION [None]
